FAERS Safety Report 25530954 (Version 1)
Quarter: 2025Q3

REPORT INFORMATION
  Report Type: Spontaneous
  Country: US (occurrence: US)
  Receive Date: 20250708
  Receipt Date: 20250708
  Transmission Date: 20251021
  Serious: Yes (Other)
  Sender: AMERICAN REGENT
  Company Number: US-AMERICAN REGENT INC-2025002637

PATIENT
  Sex: Female

DRUGS (7)
  1. EPINEPHRINE [Suspect]
     Active Substance: EPINEPHRINE
     Indication: Septic shock
     Route: 065
  2. VASOPRESSIN [Suspect]
     Active Substance: VASOPRESSIN
     Indication: Septic shock
     Route: 065
  3. NOREPINEPHRINE [Suspect]
     Active Substance: NOREPINEPHRINE
     Indication: Septic shock
     Route: 065
  4. TACROLIMUS [Concomitant]
     Active Substance: TACROLIMUS
     Indication: Immunosuppressant drug therapy
     Route: 048
  5. PREDNISONE [Concomitant]
     Active Substance: PREDNISONE
     Indication: Immunosuppressant drug therapy
     Route: 048
  6. WARFARIN [Concomitant]
     Active Substance: WARFARIN
     Indication: Product used for unknown indication
     Route: 065
  7. SIROLIMUS [Concomitant]
     Active Substance: SIROLIMUS
     Indication: Immunosuppressant drug therapy
     Route: 065

REACTIONS (2)
  - Drug ineffective [Not Recovered/Not Resolved]
  - Septic shock [Not Recovered/Not Resolved]
